FAERS Safety Report 23036579 (Version 1)
Quarter: 2023Q4

REPORT INFORMATION
  Report Type: Spontaneous
  Country: US (occurrence: US)
  Receive Date: 20231006
  Receipt Date: 20231006
  Transmission Date: 20240109
  Serious: Yes (Hospitalization)
  Sender: FDA-Public Use
  Company Number: US-AVET LIFESCIENCES LTD-2023-AVET-000287

PATIENT
  Age: 22 Year

DRUGS (10)
  1. AMANTADINE HYDROCHLORIDE [Interacting]
     Active Substance: AMANTADINE HYDROCHLORIDE
     Indication: Post-traumatic headache
     Dosage: 100 MILLIGRAM, BID
     Dates: start: 20220405
  2. BUPROPION HYDROCHLORIDE [Interacting]
     Active Substance: BUPROPION HYDROCHLORIDE
     Indication: Major depression
     Dosage: 300 MG DAILY
     Dates: start: 20211229
  3. BUPROPION HYDROCHLORIDE [Interacting]
     Active Substance: BUPROPION HYDROCHLORIDE
     Dosage: 450 MILLIGRAM (INCREASED FROM 300 MG TO 450 MG)
     Dates: start: 20220301
  4. DULOXETINE [Interacting]
     Active Substance: DULOXETINE
     Indication: Major depression
     Dosage: 40 MG TWICE A DAY
     Dates: start: 20211229
  5. DULOXETINE [Interacting]
     Active Substance: DULOXETINE
     Indication: Anxiety disorder
     Dosage: 40 MG TWICE A DAY
     Dates: start: 20211229
  6. DULOXETINE [Interacting]
     Active Substance: DULOXETINE
     Indication: Migraine
  7. GABAPENTIN [Interacting]
     Active Substance: GABAPENTIN
     Indication: Headache
     Dosage: 100 MG 3 TIMES A DAY
     Dates: start: 20220112
  8. GABAPENTIN [Interacting]
     Active Substance: GABAPENTIN
     Dosage: DOSE INCREASED TO 300 MG THREE TIMES A DAY
     Dates: start: 20220210
  9. ONDANSETRON [Concomitant]
     Active Substance: ONDANSETRON
     Dosage: 20 TABLETS 9 DAYS AFTER INJURY
  10. BOTULINUM TOXIN NOS [Concomitant]
     Active Substance: BOTULINUM TOXIN NOS
     Indication: Migraine
     Dosage: UNK
     Dates: start: 20220308

REACTIONS (3)
  - Serotonin syndrome [Recovered/Resolved]
  - Drug interaction [Unknown]
  - Off label use [Unknown]

NARRATIVE: CASE EVENT DATE: 20220415
